FAERS Safety Report 18013473 (Version 1)
Quarter: 2020Q3

REPORT INFORMATION
  Report Type: Spontaneous
  Country: US (occurrence: US)
  Receive Date: 20200710
  Receipt Date: 20200710
  Transmission Date: 20201103
  Serious: Yes (Hospitalization, Other)
  Sender: FDA-Public Use
  Company Number: None

PATIENT
  Age: 37 Year
  Sex: Female
  Weight: 81 kg

DRUGS (4)
  1. FLUOXETINE 40MG [Suspect]
     Active Substance: FLUOXETINE HYDROCHLORIDE
     Indication: MAJOR DEPRESSION
     Dosage: ?          QUANTITY:1 CAPSULE(S);?
     Route: 048
     Dates: start: 20200627, end: 20200629
  2. DROSPIRENONE?ETHYINYL ESTRADIOL [Concomitant]
  3. FLUOXETINE [Concomitant]
     Active Substance: FLUOXETINE HYDROCHLORIDE
  4. ARIPRIPRAZOLE [Concomitant]
     Active Substance: ARIPIPRAZOLE

REACTIONS (7)
  - Decreased appetite [None]
  - Decreased activity [None]
  - Abnormal dreams [None]
  - Self-injurious ideation [None]
  - Depressed mood [None]
  - Depression [None]
  - Therapy cessation [None]

NARRATIVE: CASE EVENT DATE: 20200630
